FAERS Safety Report 8401854-4 (Version None)
Quarter: 2012Q2

REPORT INFORMATION
  Report Type: 
  Country: None (occurrence: None)
  Receive Date: 20120529
  Receipt Date: 20011214
  Transmission Date: 20120825
  Serious: Yes (Hospitalization)
  Sender: FDA-Public Use
  Company Number: 02100-JPN-01-0118

PATIENT
  Age: 72 Year
  Sex: Male
  Weight: 74.6 kg

DRUGS (9)
  1. PLETAL [Suspect]
     Indication: THROMBOSIS PROPHYLAXIS
     Dosage: 100 MG, BID, ORAL
     Route: 048
     Dates: start: 20000929, end: 20001124
  2. ENALAPRIL MALEATE [Concomitant]
  3. ALDACTONE [Concomitant]
  4. ALMARL (AROTINOLOL HYDROCHLORIDE) [Concomitant]
  5. LENDORM [Concomitant]
  6. LASIX [Concomitant]
  7. ADALAT [Concomitant]
  8. FAMOTIDINE [Concomitant]
  9. TAMSULOSIN HYDROCHLORIDE [Concomitant]

REACTIONS (3)
  - STRIDOR [None]
  - PNEUMOTHORAX [None]
  - DYSPNOEA [None]
